FAERS Safety Report 6569402-1 (Version None)
Quarter: 2009Q4

REPORT INFORMATION
  Report Type: 
  Country: None (occurrence: None)
  Receive Date: 20090826
  Receipt Date: 20090826
  Transmission Date: 20100525
  Serious: No
  Sender: FDA-Public Use
  Company Number: None

PATIENT
  Age: 31 Year
  Sex: Male

DRUGS (1)
  1. C-MYB ANTISENSE OLIGODEOXYNUCLEOTIDE [Suspect]
     Indication: ACUTE MYELOID LEUKAEMIA
     Dosage: 12 MG/M2/DAY, 7 DAYS, IV
     Route: 042
     Dates: start: 20090505, end: 20090511

REACTIONS (1)
  - BLOOD BILIRUBIN INCREASED [None]
